FAERS Safety Report 9298569 (Version 1)
Quarter: 2013Q2

REPORT INFORMATION
  Report Type: Spontaneous
  Country: US (occurrence: US)
  Receive Date: 20130520
  Receipt Date: 20130520
  Transmission Date: 20140414
  Serious: Yes (Hospitalization)
  Sender: FDA-Public Use
  Company Number: US-BAYER-2013-059901

PATIENT
  Age: 90 Year
  Sex: Female
  Weight: 50.79 kg

DRUGS (4)
  1. PHILLIPS^ MILK OF MAGNESIA [Suspect]
     Indication: CONSTIPATION
     Dosage: 1 TABLESPOON, QD
     Route: 048
  2. PHILLIPS^ MILK OF MAGNESIA [Suspect]
     Indication: CONSTIPATION
     Dosage: 2 TABLESPOONS
     Dates: start: 20130429, end: 20130429
  3. BENICAR [Concomitant]
  4. CLOZAPINE [Concomitant]

REACTIONS (6)
  - Overdose [Recovered/Resolved]
  - Hypotension [None]
  - Abdominal pain upper [Recovered/Resolved]
  - Dyspepsia [Recovered/Resolved]
  - Dizziness [Recovered/Resolved]
  - Hypoaesthesia [Recovered/Resolved]
